FAERS Safety Report 5306100-6 (Version None)
Quarter: 2007Q2

REPORT INFORMATION
  Report Type: 
  Country: None (occurrence: None)
  Receive Date: 20070424
  Receipt Date: 20061101
  Transmission Date: 20071010
  Serious: Yes (Other)
  Sender: FDA-Public Use
  Company Number: US-BRISTOL-MYERS SQUIBB COMPANY-13537824

PATIENT
  Age: 47 Year
  Sex: Male
  Weight: 85 kg

DRUGS (8)
  1. CARBOPLATIN [Suspect]
     Indication: LUNG CANCER METASTATIC
     Route: 042
     Dates: start: 20061009, end: 20061009
  2. PROTONIX [Concomitant]
  3. PROCRIT [Concomitant]
  4. NEULASTA [Concomitant]
     Route: 058
  5. ULTRAM [Concomitant]
  6. TAXOTERE [Concomitant]
  7. DECADRON [Concomitant]
     Indication: PREMEDICATION
  8. KYTRIL [Concomitant]
     Indication: PREMEDICATION

REACTIONS (2)
  - ERYTHEMA [None]
  - PRURITUS [None]
